FAERS Safety Report 5041852-4 (Version None)
Quarter: 2006Q2

REPORT INFORMATION
  Report Type: 
  Country: None (occurrence: None)
  Receive Date: 20060630
  Receipt Date: 20060620
  Transmission Date: 20061013
  Serious: Yes (Death, Hospitalization)
  Sender: FDA-Public Use
  Company Number: GXKR2006US03504

PATIENT
  Age: 45 Year
  Sex: Female

DRUGS (3)
  1. FLUCONAZOLE [Suspect]
     Indication: LIVER ABSCESS
     Dosage: 800 MG, INTRAVENOUS
     Route: 042
  2. VANCOMYCIN [Concomitant]
  3. GATIFLOXACIN [Concomitant]

REACTIONS (9)
  - DRUG RESISTANCE [None]
  - ENTEROCOCCAL INFECTION [None]
  - ESCHERICHIA INFECTION [None]
  - GASTROINTESTINAL HAEMORRHAGE [None]
  - HYPOTENSION [None]
  - MENTAL STATUS CHANGES [None]
  - MULTI-ORGAN FAILURE [None]
  - SPLENIC ABSCESS [None]
  - SYSTEMIC CANDIDA [None]
